FAERS Safety Report 19397297 (Version 1)
Quarter: 2021Q2

REPORT INFORMATION
  Report Type: Other
  Country: US (occurrence: US)
  Receive Date: 20210609
  Receipt Date: 20210609
  Transmission Date: 20210717
  Serious: No
  Sender: FDA-Public Use
  Company Number: US-ROCHE-2717327

PATIENT
  Age: 62 Year
  Sex: Female
  Weight: 107.14 kg

DRUGS (10)
  1. OCREVUS [Suspect]
     Active Substance: OCRELIZUMAB
     Indication: PRIMARY PROGRESSIVE MULTIPLE SCLEROSIS
     Dosage: FULL DOSE
     Route: 042
     Dates: start: 20210519
  2. OCREVUS [Suspect]
     Active Substance: OCRELIZUMAB
     Indication: MULTIPLE SCLEROSIS
  3. ZINC. [Concomitant]
     Active Substance: ZINC
  4. TYLENOL [Concomitant]
     Active Substance: ACETAMINOPHEN
  5. OCREVUS [Suspect]
     Active Substance: OCRELIZUMAB
     Indication: PROGRESSIVE MULTIPLE SCLEROSIS
     Dosage: ONGOING : YES
     Route: 042
     Dates: start: 20201118, end: 202012
  6. IBUPROFEN. [Concomitant]
     Active Substance: IBUPROFEN
  7. ACETAMINOPHEN. [Concomitant]
     Active Substance: ACETAMINOPHEN
  8. VITAMIN D3 [Concomitant]
     Active Substance: CHOLECALCIFEROL
  9. BACLOFEN. [Concomitant]
     Active Substance: BACLOFEN
     Indication: MUSCLE SPASMS
  10. ECHINACEA FORTE [Concomitant]

REACTIONS (14)
  - Paraesthesia [Recovering/Resolving]
  - Muscle spasticity [Unknown]
  - Chills [Recovered/Resolved]
  - COVID-19 [Unknown]
  - Anosmia [Unknown]
  - Meniscus injury [Unknown]
  - Hyperhidrosis [Recovered/Resolved]
  - Diarrhoea [Recovering/Resolving]
  - Toothache [Not Recovered/Not Resolved]
  - Feeling hot [Recovered/Resolved]
  - Asthenia [Not Recovered/Not Resolved]
  - Burning sensation [Recovered/Resolved]
  - Erythema [Recovered/Resolved]
  - Arthropathy [Unknown]

NARRATIVE: CASE EVENT DATE: 20201118
